FAERS Safety Report 8325813-5 (Version None)
Quarter: 2012Q2

REPORT INFORMATION
  Report Type: 
  Country: None (occurrence: None)
  Receive Date: 20120501
  Receipt Date: 20120418
  Transmission Date: 20120825
  Serious: No
  Sender: FDA-Public Use
  Company Number: US-BIOGENIDEC-2012BI013621

PATIENT
  Sex: Female

DRUGS (2)
  1. TYSABRI [Suspect]
     Indication: MULTIPLE SCLEROSIS
     Route: 042
     Dates: start: 20110121, end: 20120201
  2. COUMADIN [Concomitant]
     Route: 048

REACTIONS (4)
  - DIARRHOEA [None]
  - ANTICOAGULATION DRUG LEVEL BELOW THERAPEUTIC [None]
  - HEADACHE [None]
  - MYALGIA [None]
